FAERS Safety Report 21219469 (Version 1)
Quarter: 2022Q3

REPORT INFORMATION
  Report Type: Spontaneous
  Country: GB (occurrence: GB)
  Receive Date: 20220817
  Receipt Date: 20220817
  Transmission Date: 20221027
  Serious: Yes (Disabling)
  Sender: FDA-Public Use
  Company Number: GB-NOVARTISPH-NVSC2022GB185349

PATIENT
  Age: 69 Year
  Sex: Female
  Weight: 63 kg

DRUGS (1)
  1. BISOPROLOL [Suspect]
     Active Substance: BISOPROLOL
     Indication: Product used for unknown indication
     Dosage: UNK
     Route: 065

REACTIONS (1)
  - Dyspnoea [Recovering/Resolving]

NARRATIVE: CASE EVENT DATE: 20160101
